FAERS Safety Report 15805868 (Version 2)
Quarter: 2019Q1

REPORT INFORMATION
  Report Type: Spontaneous
  Country: DE (occurrence: DE)
  Receive Date: 20190110
  Receipt Date: 20190218
  Transmission Date: 20190417
  Serious: Yes (Hospitalization)
  Sender: FDA-Public Use
  Company Number: DE-BIOGEN-2019BI00681746

PATIENT
  Age: 35 Year
  Sex: Female

DRUGS (4)
  1. DULOXALTA [Concomitant]
     Indication: DEPRESSION
     Route: 065
     Dates: start: 201601
  2. CYMBALTA [Concomitant]
     Active Substance: DULOXETINE HYDROCHLORIDE
     Indication: DEPRESSION
     Route: 065
  3. PROPRANOLOL [Concomitant]
     Active Substance: PROPRANOLOL HYDROCHLORIDE
     Indication: TREMOR
     Dosage: FOR ONE DOSE
     Route: 065
  4. TYSABRI [Suspect]
     Active Substance: NATALIZUMAB
     Indication: RELAPSING-REMITTING MULTIPLE SCLEROSIS
     Dosage: INFUSED OVER ONE HOUR
     Route: 042
     Dates: start: 200812, end: 20160620

REACTIONS (1)
  - Adenocarcinoma of the cervix [Recovered/Resolved]

NARRATIVE: CASE EVENT DATE: 20160707
